FAERS Safety Report 15316508 (Version 4)
Quarter: 2019Q4

REPORT INFORMATION
  Report Type: Spontaneous
  Country: US (occurrence: US)
  Receive Date: 20180824
  Receipt Date: 20191016
  Transmission Date: 20200122
  Serious: Yes (Other)
  Sender: FDA-Public Use
  Company Number: US-IPSEN BIOPHARMACEUTICALS, INC.-2018-11547

PATIENT
  Age: 53 Year
  Sex: Male

DRUGS (5)
  1. DYSPORT [Suspect]
     Active Substance: ABOBOTULINUMTOXINA
     Indication: OFF LABEL USE
  2. DYSPORT [Suspect]
     Active Substance: ABOBOTULINUMTOXINA
     Indication: SKIN WRINKLING
     Dosage: NOT REPORTED
     Route: 065
     Dates: start: 20180706, end: 20180706
  3. METAPOL [Concomitant]
  4. BOTOX [Concomitant]
     Active Substance: ONABOTULINUMTOXINA
     Dates: start: 2015, end: 2018
  5. DYSPORT [Suspect]
     Active Substance: ABOBOTULINUMTOXINA
     Indication: SKIN WRINKLING

REACTIONS (25)
  - Eyelid ptosis [Recovered/Resolved]
  - Dysarthria [Recovered/Resolved]
  - Palpitations [Unknown]
  - Dysgeusia [Unknown]
  - Neuromuscular toxicity [Unknown]
  - Dizziness [Recovered/Resolved]
  - Headache [Unknown]
  - Dry mouth [Unknown]
  - Weight decreased [Recovered/Resolved]
  - Fatigue [Unknown]
  - Feeling abnormal [Unknown]
  - Asthenia [Unknown]
  - Overdose [Unknown]
  - Tinnitus [Unknown]
  - Diarrhoea [Unknown]
  - Gait inability [Recovered/Resolved]
  - Chest pain [Unknown]
  - Influenza like illness [Unknown]
  - Dyspnoea [Recovered/Resolved]
  - Vision blurred [Unknown]
  - Paraesthesia [Unknown]
  - Muscular weakness [Not Recovered/Not Resolved]
  - Blood pressure fluctuation [Unknown]
  - Off label use [Unknown]
  - Decreased appetite [Unknown]

NARRATIVE: CASE EVENT DATE: 2018
